FAERS Safety Report 6084858-9 (Version None)
Quarter: 2009Q1

REPORT INFORMATION
  Report Type: 
  Country: None (occurrence: None)
  Receive Date: 20090218
  Receipt Date: 20090203
  Transmission Date: 20090719
  Serious: Yes (Other)
  Sender: FDA-Public Use
  Company Number: 2009S1001952

PATIENT
  Age: 16 Year
  Sex: Male

DRUGS (11)
  1. METHOTREXATE [Suspect]
     Indication: LYMPHOCYTIC LEUKAEMIA
     Dosage: 12 MG; TWICEA WEEK; INTRATHECAL
     Route: 037
  2. HYDROCORTISONE [Concomitant]
  3. CYTARABINE [Concomitant]
  4. PREDNISONE [Concomitant]
  5. VINCRISTINE [Concomitant]
  6. DAUNORUBICIN HCL [Concomitant]
  7. PEGASPARGASE [Concomitant]
  8. DACTINOMYCIN [Concomitant]
  9. CYTARABINE [Concomitant]
  10. THIOGUANINE [Concomitant]
  11. FOLINIC ACID [Concomitant]

REACTIONS (7)
  - AFFECT LABILITY [None]
  - DYSARTHRIA [None]
  - FACIAL PARESIS [None]
  - HEMIPLEGIA [None]
  - LEUKOENCEPHALOPATHY [None]
  - NEUROTOXICITY [None]
  - NUCLEAR MAGNETIC RESONANCE IMAGING BRAIN ABNORMAL [None]
